FAERS Safety Report 8465663-2 (Version None)
Quarter: 2012Q2

REPORT INFORMATION
  Report Type: 
  Country: None (occurrence: None)
  Receive Date: 20120619
  Receipt Date: 20120531
  Transmission Date: 20120825
  Serious: Yes (Hospitalization, Other)
  Sender: FDA-Public Use
  Company Number: JPI-P-021903

PATIENT
  Age: 60 Year
  Sex: Female
  Weight: 77.1115 kg

DRUGS (13)
  1. MONTELUKAST SODIUM [Concomitant]
  2. VITAMIN D [Concomitant]
  3. VENLAFAXINE HYDROCHOLRIDE [Concomitant]
  4. VENLAFAXINE HYDROCHLORIDE EXTENDED RELEASE [Concomitant]
  5. VALSARTAN [Concomitant]
  6. XYREM [Suspect]
     Indication: WAXY FLEXIBILITY
     Dosage: ORAL (3.0 GM 1ST DOSE/2.25 GM 2ND DOSE), ORAL
     Route: 048
     Dates: start: 20120516
  7. XYREM [Suspect]
     Indication: WAXY FLEXIBILITY
     Dosage: ORAL (3.0 GM 1ST DOSE/2.25 GM 2ND DOSE), ORAL
     Route: 048
     Dates: start: 20071201, end: 20101201
  8. XYREM [Suspect]
     Indication: WAXY FLEXIBILITY
     Dosage: ORAL (3.0 GM 1ST DOSE/2.25 GM 2ND DOSE), ORAL
     Route: 048
     Dates: start: 20120301, end: 20120515
  9. XYREM [Suspect]
     Indication: WAXY FLEXIBILITY
     Dosage: ORAL (3.0 GM 1ST DOSE/2.25 GM 2ND DOSE), ORAL
     Route: 048
     Dates: start: 20120201, end: 20120201
  10. AMLODIPINE BESYLATE [Concomitant]
  11. AMPHETAMINE, DEXOTRAMPHETAMINE MIXED SALTS [Concomitant]
  12. HYDROCHLOROTHIAZIDE [Concomitant]
  13. BUPROPION HYDROCHLORIDE [Concomitant]

REACTIONS (13)
  - OEDEMA PERIPHERAL [None]
  - WRONG TECHNIQUE IN DRUG USAGE PROCESS [None]
  - FATIGUE [None]
  - BLOOD POTASSIUM DECREASED [None]
  - INSOMNIA [None]
  - NASAL CONGESTION [None]
  - NASOPHARYNGITIS [None]
  - UNRESPONSIVE TO STIMULI [None]
  - JOINT SWELLING [None]
  - OXYGEN SATURATION DECREASED [None]
  - MYOSITIS [None]
  - MIDDLE INSOMNIA [None]
  - DEPRESSED LEVEL OF CONSCIOUSNESS [None]
